FAERS Safety Report 19855054 (Version 1)
Quarter: 2021Q3

REPORT INFORMATION
  Report Type: Spontaneous
  Country: IR (occurrence: IR)
  Receive Date: 20210920
  Receipt Date: 20210920
  Transmission Date: 20211014
  Serious: Yes (Other)
  Sender: FDA-Public Use
  Company Number: IR-ABBVIE-21K-080-4079823-00

PATIENT
  Age: 38 Year
  Sex: Male
  Weight: 50 kg

DRUGS (8)
  1. DEPAKINE [Suspect]
     Active Substance: VALPROATE SODIUM
     Indication: MENTAL DISORDER
  2. PHENYTOIN. [Concomitant]
     Active Substance: PHENYTOIN
     Indication: NERVOUS SYSTEM DISORDER
  3. DEPAKINE [Suspect]
     Active Substance: VALPROATE SODIUM
     Indication: NERVOUS SYSTEM DISORDER
     Dosage: 1 PER NIGHT AND 1 PER DAY
     Route: 048
  4. LEVETIRACETAM. [Concomitant]
     Active Substance: LEVETIRACETAM
     Indication: NERVOUS SYSTEM DISORDER
  5. LEVETIRACETAM. [Concomitant]
     Active Substance: LEVETIRACETAM
     Indication: MENTAL DISORDER
  6. CLONAZEPAM. [Concomitant]
     Active Substance: CLONAZEPAM
     Indication: NERVOUS SYSTEM DISORDER
  7. CLONAZEPAM. [Concomitant]
     Active Substance: CLONAZEPAM
     Indication: MENTAL DISORDER
  8. PHENYTOIN. [Concomitant]
     Active Substance: PHENYTOIN
     Indication: MENTAL DISORDER

REACTIONS (4)
  - Aggression [Recovered/Resolved]
  - Delirium [Recovered/Resolved]
  - Stupor [Recovered/Resolved]
  - Product use in unapproved indication [Unknown]
